FAERS Safety Report 5870635-8 (Version None)
Quarter: 2008Q3

REPORT INFORMATION
  Report Type: 
  Country: None (occurrence: None)
  Receive Date: 20080904
  Receipt Date: 20080901
  Transmission Date: 20090109
  Serious: Yes (Death)
  Sender: FDA-Public Use
  Company Number: B0535629A

PATIENT
  Age: 84 Year
  Sex: Male

DRUGS (13)
  1. LANOXIN [Suspect]
     Indication: SINUS TACHYCARDIA
     Dosage: 12MG PER DAY
     Route: 048
     Dates: start: 20080803, end: 20080811
  2. SALBUTAMOL [Concomitant]
     Dosage: 1G PER DAY
     Route: 055
     Dates: start: 20080803, end: 20080806
  3. TAMSULOSIN HCL [Concomitant]
     Dosage: 4MG PER DAY
     Dates: start: 20080715, end: 20080811
  4. LORAZEPAM [Concomitant]
     Dosage: 1MG PER DAY
     Route: 048
     Dates: start: 20080724, end: 20080810
  5. INSULIN [Concomitant]
     Route: 058
     Dates: start: 20080720, end: 20080810
  6. IPRATROPIUM BROMIDE [Concomitant]
     Dosage: 1500MG PER DAY
     Route: 055
     Dates: start: 20080721, end: 20080811
  7. BECLOMETHASONE DIPROPIONATE [Concomitant]
     Dosage: 1200MG PER DAY
     Route: 055
     Dates: start: 20080721, end: 20080811
  8. CIPROFLOXACIN [Concomitant]
     Dosage: 1000MG PER DAY
     Route: 048
  9. MIRTAZAPINE [Concomitant]
     Route: 048
     Dates: start: 20080801, end: 20080807
  10. FINASTERIDE [Concomitant]
     Dosage: 5MG PER DAY
     Route: 048
     Dates: start: 20080805, end: 20080810
  11. CHLORPROMAZINE [Concomitant]
     Dosage: 40MG PER DAY
     Route: 048
     Dates: start: 20080808, end: 20080809
  12. MORPHINE [Concomitant]
     Dosage: 2MG PER DAY
     Route: 058
     Dates: start: 20080806, end: 20080807
  13. ACETAMINOPHEN [Concomitant]
     Dosage: 1G PER DAY
     Route: 048
     Dates: start: 20080801, end: 20080810

REACTIONS (2)
  - GASTROINTESTINAL NECROSIS [None]
  - ISCHAEMIA [None]
